FAERS Safety Report 13093592 (Version 1)
Quarter: 2017Q1

REPORT INFORMATION
  Report Type: Spontaneous
  Country: US (occurrence: US)
  Receive Date: 20170105
  Receipt Date: 20170105
  Transmission Date: 20170428
  Serious: Yes (Hospitalization)
  Sender: FDA-Public Use
  Company Number: None

PATIENT
  Age: 74 Year
  Sex: Female

DRUGS (21)
  1. LORAZEPAM. [Concomitant]
     Active Substance: LORAZEPAM
  2. CRANBERRY. [Concomitant]
     Active Substance: CRANBERRY
  3. PAU D^ARCO [Concomitant]
  4. TURMERIC [Concomitant]
     Active Substance: TURMERIC
  5. NAPROXEN. [Concomitant]
     Active Substance: NAPROXEN
  6. VITAMIN D3 [Concomitant]
     Active Substance: CHOLECALCIFEROL
  7. MILK THISTLE [Concomitant]
     Active Substance: MILK THISTLE
  8. IBUPROFEN. [Concomitant]
     Active Substance: IBUPROFEN
  9. BILBERRY [Concomitant]
     Active Substance: BILBERRY
  10. VITAMIN B12 [Concomitant]
     Active Substance: CYANOCOBALAMIN
  11. ASPIRIN. [Concomitant]
     Active Substance: ASPIRIN
  12. VITAMIN C [Concomitant]
     Active Substance: ASCORBIC ACID
  13. TIZANIDINE. [Concomitant]
     Active Substance: TIZANIDINE
  14. SELENICAPS [Concomitant]
  15. IMATINIB 400 MG [Suspect]
     Active Substance: IMATINIB
     Indication: CHRONIC MYELOID LEUKAEMIA
     Route: 048
     Dates: start: 20130816
  16. BETA CAROTENE [Concomitant]
  17. FOLIC ACID. [Concomitant]
     Active Substance: FOLIC ACID
  18. MACULAR VIT [Concomitant]
  19. LEVOTHYROXINE. [Concomitant]
     Active Substance: LEVOTHYROXINE
  20. MAGNESIUM [Concomitant]
     Active Substance: MAGNESIUM
  21. FLAX SEED [Concomitant]
     Active Substance: FLAX SEED

REACTIONS (2)
  - Dehydration [None]
  - Gastrointestinal viral infection [None]

NARRATIVE: CASE EVENT DATE: 20161225
